FAERS Safety Report 8891140 (Version 1)
Quarter: 2012Q4

REPORT INFORMATION
  Report Type: Report from Study
  Country: US (occurrence: US)
  Receive Date: 20121107
  Receipt Date: 20121107
  Transmission Date: 20130627
  Serious: Yes (Hospitalization, Other)
  Sender: FDA-Public Use
  Company Number: US-ABBOTT-12P-163-1001878-00

PATIENT
  Age: 12 Year
  Sex: Male
  Weight: 36.32 kg

DRUGS (2)
  1. HUMIRA [Suspect]
     Dates: start: 20120302, end: 201210
  2. HUMIRA [Suspect]
     Dates: start: 20121026

REACTIONS (9)
  - Pyrexia [Recovered/Resolved]
  - Gastrointestinal inflammation [Not Recovered/Not Resolved]
  - Red blood cell sedimentation rate increased [Unknown]
  - Pyrexia [Recovered/Resolved]
  - Weight decreased [Not Recovered/Not Resolved]
  - Frequent bowel movements [Not Recovered/Not Resolved]
  - Defaecation urgency [Not Recovered/Not Resolved]
  - Haematochezia [Not Recovered/Not Resolved]
  - Off label use [Not Recovered/Not Resolved]
